FAERS Safety Report 4675095-0 (Version None)
Quarter: 2005Q2

REPORT INFORMATION
  Report Type: 
  Country: None (occurrence: None)
  Receive Date: 20050525
  Receipt Date: 20050519
  Transmission Date: 20051028
  Serious: Yes (Hospitalization)
  Sender: FDA-Public Use
  Company Number: 2005-128334-NL

PATIENT
  Age: 58 Year
  Sex: Female

DRUGS (3)
  1. MIRTAZAPINE [Suspect]
     Indication: DEPRESSION
     Dosage: 30 MG ORAL
     Route: 048
     Dates: start: 20030101, end: 20050416
  2. REBOXETINE MESILATE [Suspect]
     Dosage: 12 MG ORAL
     Route: 048
     Dates: start: 20050303, end: 20050406
  3. VENLAFAXINE HCL [Suspect]
     Dosage: 150 MG ORAL
     Route: 048
     Dates: start: 20030101, end: 20050406

REACTIONS (2)
  - CONVULSION [None]
  - HYPONATRAEMIA [None]
